FAERS Safety Report 23907170 (Version 1)
Quarter: 2024Q2

REPORT INFORMATION
  Report Type: Spontaneous
  Country: ES (occurrence: ES)
  Receive Date: 20240528
  Receipt Date: 20240528
  Transmission Date: 20240716
  Serious: Yes (Hospitalization)
  Sender: FDA-Public Use
  Company Number: ES-ROCHE-2963834

PATIENT
  Age: 78 Year
  Sex: Male
  Weight: 86 kg

DRUGS (28)
  1. CARBOPLATIN [Suspect]
     Active Substance: CARBOPLATIN
     Indication: Non-small cell lung cancer metastatic
     Dosage: ON 06/SEP/2021, HE RECEIVED MOST RECENT DOSE OF CARBOPLATIN PRIOR TO AE AND SAE. DOSE LAST CARBOPLAT
     Route: 042
     Dates: start: 20210621
  2. PEMETREXED [Suspect]
     Active Substance: PEMETREXED
     Indication: Non-small cell lung cancer metastatic
     Dosage: ON 25/OCT/2021, MOST RECENT DOSE OF PEMETREXED PRIOR TO AE AND SAE. DOSE LAST PEMETREXED ADMIN PRIOR
     Route: 042
     Dates: start: 20210621
  3. ALLOPURINOL [Concomitant]
     Active Substance: ALLOPURINOL
     Indication: Hyperuricaemia
     Dosage: 300.000MG QD
     Route: 065
  4. AMOXICILLIN [Concomitant]
     Active Substance: AMOXICILLIN
     Indication: Pneumonitis
     Dosage: 1000.000MG
     Route: 065
     Dates: start: 20211121, end: 20211129
  5. ATEZOLIZUMAB [Concomitant]
     Active Substance: ATEZOLIZUMAB
     Indication: Non-small cell lung cancer metastatic
     Dosage: ON 25/OCT/2021, MOST RECENT DOSE OF BLINDED ATEZOLIZUMAB PRIOR TO AE AND SAE ONSET.
     Route: 065
     Dates: start: 20210621
  6. BUDESONIDE [Concomitant]
     Active Substance: BUDESONIDE
     Indication: Benign prostatic hyperplasia
     Dosage: 2 INHALATION
     Route: 065
  7. BUDESONIDE [Concomitant]
     Active Substance: BUDESONIDE
     Indication: Chronic obstructive pulmonary disease
  8. CLAVULANIC ACID [Concomitant]
     Active Substance: CLAVULANIC ACID
     Indication: Pneumonitis
     Dosage: 200.000MG
     Route: 065
     Dates: start: 20211121, end: 20211129
  9. FOLIC ACID [Concomitant]
     Active Substance: FOLIC ACID
     Indication: Prophylaxis
     Dosage: 5.000MG QD
     Route: 065
     Dates: start: 20210614
  10. FUROSEMIDE [Concomitant]
     Active Substance: FUROSEMIDE
     Indication: Dyspnoea
     Dosage: 1 AMPULE
     Route: 065
     Dates: start: 20211121, end: 20211129
  11. FUROSEMIDE [Concomitant]
     Active Substance: FUROSEMIDE
     Indication: Oedema
     Dosage: UNK
     Route: 065
     Dates: start: 20210712
  12. BENZOCAINE\EPHEDRINE [Concomitant]
     Active Substance: BENZOCAINE\EPHEDRINE
     Indication: Haemorrhoids
     Dosage: UNK
     Route: 065
     Dates: start: 20210810
  13. BENZOCAINE\EPHEDRINE [Concomitant]
     Active Substance: BENZOCAINE\EPHEDRINE
     Indication: Prophylaxis
  14. EDOXABAN TOSYLATE [Concomitant]
     Active Substance: EDOXABAN TOSYLATE
     Indication: Prophylaxis
     Dosage: 560.000MG QD
     Route: 065
  15. MAGNESIUM [Concomitant]
     Active Substance: MAGNESIUM
     Indication: Hypomagnesaemia
     Dosage: UNK
     Route: 065
     Dates: start: 20210830
  16. METHYLPREDNISOLONE [Concomitant]
     Active Substance: METHYLPREDNISOLONE
     Indication: Dyspnoea
     Dosage: MEDICATION DOSE 1 OTHER
     Route: 065
     Dates: start: 20211121
  17. MOVICOL [Concomitant]
     Active Substance: POLYETHYLENE GLYCOL 3350\POTASSIUM CHLORIDE\SODIUM BICARBONATE\SODIUM CHLORIDE
     Indication: Constipation
     Dosage: UNK
     Route: 065
     Dates: start: 20210712
  18. OMEPRAZOLE [Concomitant]
     Active Substance: DONEPEZIL HYDROCHLORIDE\OMEPRAZOLE\OMEPRAZOLE MAGNESIUM
     Indication: Prophylaxis
     Dosage: 20.000MG QD
     Route: 065
  19. CYANOCOBALAMIN [Concomitant]
     Active Substance: CYANOCOBALAMIN
     Indication: Prophylaxis
     Dosage: 1 INHALATION
     Route: 065
     Dates: start: 20210621
  20. OXYGEN [Concomitant]
     Active Substance: OXYGEN
     Indication: Chronic obstructive pulmonary disease
     Dosage: 3 OTHER
     Route: 065
  21. PEMBROLIZUMAB [Concomitant]
     Active Substance: PEMBROLIZUMAB
     Indication: Non-small cell lung cancer metastatic
     Dosage: ON 25/OCT/2021, MOST RECENT DOSE OF BLINDED PEMBROLIZUMAB PRIOR TO AE AND SAE ONSET.
     Route: 065
     Dates: start: 20210621
  22. RECTIV [Concomitant]
     Active Substance: NITROGLYCERIN
     Indication: Anal fissure
     Dosage: UNK
     Route: 065
     Dates: start: 20211004
  23. SIMVASTATIN [Concomitant]
     Active Substance: SIMVASTATIN
     Indication: Dyslipidaemia
     Dosage: 20.000MG QD
     Route: 065
  24. OLODATEROL HYDROCHLORIDE\TIOTROPIUM BROMIDE MONOHYDRATE [Concomitant]
     Active Substance: OLODATEROL HYDROCHLORIDE\TIOTROPIUM BROMIDE MONOHYDRATE
     Indication: Chronic obstructive pulmonary disease
     Dosage: 2 INHALATION
     Route: 065
  25. SULMETIN [Concomitant]
     Indication: Hypomagnesaemia
     Dosage: UNK
     Route: 065
     Dates: start: 20210830
  26. TIRAGOLUMAB [Concomitant]
     Active Substance: TIRAGOLUMAB
     Indication: Non-small cell lung cancer metastatic
     Dosage: ON 25/OCT/2021, HE RECEIVED MOST RECENT DOSE OF BLINDED TIRAGOLUMAB ADMIN PRIOR AE AND SAE
     Route: 065
     Dates: start: 20210621
  27. SOLIFENACIN\TAMSULOSIN [Concomitant]
     Active Substance: SOLIFENACIN\TAMSULOSIN
     Indication: Prophylaxis
     Dosage: 6.000MG QD
     Route: 065
  28. XYLOCAINE [Concomitant]
     Active Substance: LIDOCAINE HYDROCHLORIDE\LIDOCAINE HYDROCHLORIDE ANHYDROUS
     Indication: Anal fissure
     Dosage: UNK
     Route: 065
     Dates: start: 20211004

REACTIONS (1)
  - Infective exacerbation of chronic obstructive airways disease [Recovered/Resolved]

NARRATIVE: CASE EVENT DATE: 20211121
